FAERS Safety Report 23369430 (Version 1)
Quarter: 2024Q1

REPORT INFORMATION
  Report Type: Spontaneous
  Country: DE (occurrence: DE)
  Receive Date: 20240105
  Receipt Date: 20240105
  Transmission Date: 20240410
  Serious: Yes (Other)
  Sender: FDA-Public Use
  Company Number: DE-BFARM-23007023

PATIENT
  Age: 40 Year
  Sex: Female

DRUGS (5)
  1. CITALOPRAM [Interacting]
     Active Substance: CITALOPRAM HYDROBROMIDE
     Indication: Inhibitory drug interaction
     Dosage: 20 MILLIGRAM, DAILY
     Route: 048
     Dates: end: 20230222
  2. TOPIRAMATE [Interacting]
     Active Substance: TOPIRAMATE
     Indication: Migraine prophylaxis
     Dosage: 50 MILLIGRAM, DAILY
     Route: 048
     Dates: start: 20230124, end: 20230207
  3. TOPIRAMATE [Interacting]
     Active Substance: TOPIRAMATE
     Route: 048
     Dates: start: 20230208, end: 20230405
  4. DOMPERIDONE [Concomitant]
     Active Substance: DOMPERIDONE
     Indication: Abdominal discomfort
     Dosage: 10 MILLIGRAM, DAILY
     Route: 048
  5. RELPAX [Concomitant]
     Active Substance: ELETRIPTAN HYDROBROMIDE
     Indication: Migraine
     Dosage: 20 MILLIGRAM, DAILY
     Route: 048

REACTIONS (3)
  - Dermatitis allergic [Recovered/Resolved]
  - Inhibitory drug interaction [Unknown]
  - Enzyme inhibition [Unknown]

NARRATIVE: CASE EVENT DATE: 20230221
